FAERS Safety Report 12873116 (Version 1)
Quarter: 2016Q4

REPORT INFORMATION
  Report Type: Report from Study
  Country: US (occurrence: US)
  Receive Date: 20161021
  Receipt Date: 20161021
  Transmission Date: 20170207
  Serious: Yes (Hospitalization)
  Sender: FDA-Public Use
  Company Number: US-TAIHO ONCOLOGY INC-EU-2016-02703

PATIENT
  Age: 63 Year
  Sex: Male

DRUGS (16)
  1. METOPROLOL. [Concomitant]
     Active Substance: METOPROLOL
     Dosage: NI
  2. BUDESONIDE. [Concomitant]
     Active Substance: BUDESONIDE
     Dosage: NI
  3. MUCINEX [Concomitant]
     Active Substance: GUAIFENESIN
     Dosage: NI
  4. LEVOTHYROXINE. [Concomitant]
     Active Substance: LEVOTHYROXINE
     Dosage: NI
  5. PANTOPRAZOLE [Concomitant]
     Active Substance: PANTOPRAZOLE SODIUM
     Dosage: NI
  6. BENZONATATE. [Concomitant]
     Active Substance: BENZONATATE
     Dosage: NI
  7. HYDROCHLOROTHIAZIDE/LISINOPRIL [Concomitant]
     Dosage: NI
  8. ACTAMIN [Concomitant]
     Dosage: NI
  9. FUROSEMIDE. [Concomitant]
     Active Substance: FUROSEMIDE
     Dosage: NI
  10. LONSURF [Suspect]
     Active Substance: TIPIRACIL HYDROCHLORIDE\TRIFLURIDINE
     Indication: COLON CANCER
     Route: 048
     Dates: start: 20160913
  11. SALBUTAMOL [Concomitant]
     Active Substance: ALBUTEROL
     Dosage: NI
  12. METFORMIN [Concomitant]
     Active Substance: METFORMIN HYDROCHLORIDE
     Dosage: NI
  13. AMIODARONE [Concomitant]
     Active Substance: AMIODARONE
     Dosage: NI
  14. GLIBENCLAMIDE [Concomitant]
     Active Substance: GLYBURIDE
     Dosage: NI
  15. IPRATROPIUM BROMIDE/SALBUTAMOL SULFATE [Concomitant]
     Dosage: NI
  16. FERROUS SULFATE. [Concomitant]
     Active Substance: FERROUS SULFATE
     Dosage: NI

REACTIONS (3)
  - Head injury [Unknown]
  - Pleural effusion [Unknown]
  - Fall [Unknown]

NARRATIVE: CASE EVENT DATE: 20160922
